FAERS Safety Report 17828539 (Version 2)
Quarter: 2022Q2

REPORT INFORMATION
  Report Type: Spontaneous
  Country: US (occurrence: US)
  Receive Date: 20200527
  Receipt Date: 20220506
  Transmission Date: 20220721
  Serious: No
  Sender: FDA-Public Use
  Company Number: US-PFIZER INC-2020207915

PATIENT
  Age: 80 Year
  Sex: Female

DRUGS (2)
  1. RAPAMUNE [Suspect]
     Active Substance: SIROLIMUS
     Dosage: 1 MG, 1X/DAY (1MG, TAKE ONE TABLET EVERY MORNING)
  2. RAPAMUNE [Suspect]
     Active Substance: SIROLIMUS
     Dosage: 3 MG, DAILY, (1MG 90DAY SUPPLY, 3 DAILY)

REACTIONS (1)
  - Aphonia [Unknown]
